FAERS Safety Report 17456309 (Version 1)
Quarter: 2020Q1

REPORT INFORMATION
  Report Type: Spontaneous
  Country: FR (occurrence: FR)
  Receive Date: 20200225
  Receipt Date: 20200225
  Transmission Date: 20200409
  Serious: Yes (Other)
  Sender: FDA-Public Use
  Company Number: FR-PFIZER INC-2020074809

PATIENT
  Age: 51 Year
  Sex: Female

DRUGS (4)
  1. ZYDELIG [Suspect]
     Active Substance: IDELALISIB
     Indication: NON-HODGKIN^S LYMPHOMA
     Dosage: 200 MG, DAILY (2 DF, DAILY)
     Route: 048
     Dates: start: 20161214, end: 20191007
  2. LYRICA [Suspect]
     Active Substance: PREGABALIN
     Indication: POST HERPETIC NEURALGIA
     Dosage: 300 MG, DAILY (2 DF, DAILY)
     Route: 048
  3. BACTRIM [Suspect]
     Active Substance: SULFAMETHOXAZOLE\TRIMETHOPRIM
     Indication: OPPORTUNISTIC INFECTION PROPHYLAXIS
     Dosage: 3 DF, WEEKLY
     Route: 048
  4. VALACICLOVIR [Suspect]
     Active Substance: VALACYCLOVIR HYDROCHLORIDE
     Indication: HERPES ZOSTER
     Dosage: 1000 MG, DAILY
     Route: 048

REACTIONS (1)
  - Pseudolymphoma [Recovered/Resolved]

NARRATIVE: CASE EVENT DATE: 201902
